FAERS Safety Report 5701212-7 (Version None)
Quarter: 2008Q2

REPORT INFORMATION
  Report Type: 
  Country: None (occurrence: None)
  Receive Date: 20080410
  Receipt Date: 20060929
  Transmission Date: 20081010
  Serious: No
  Sender: FDA-Public Use
  Company Number: US-BOEHRINGER INGELHEIM GMBH, GERMANY-2006-BP-11506BP

PATIENT
  Sex: Male

DRUGS (1)
  1. FLOMAX [Suspect]
     Indication: RESIDUAL URINE
     Route: 048
     Dates: start: 20060801

REACTIONS (2)
  - INTRAOCULAR PRESSURE INCREASED [None]
  - VITREOUS DISORDER [None]
